FAERS Safety Report 4523768-2 (Version None)
Quarter: 2004Q4

REPORT INFORMATION
  Report Type: 
  Country: None (occurrence: None)
  Receive Date: 20041119
  Receipt Date: 20041005
  Transmission Date: 20050328
  Serious: No
  Sender: FDA-Public Use
  Company Number: PHEH2004US09689

PATIENT
  Age: 48 Year
  Sex: Female
  Weight: 56.7 kg

DRUGS (4)
  1. ZELNORM [Suspect]
     Indication: IRRITABLE BOWEL SYNDROME
     Dosage: 6 MG, BID, ORAL
     Route: 048
     Dates: start: 20040830, end: 20040909
  2. SEROQUEL [Concomitant]
  3. REMERON [Concomitant]
  4. ALEVE [Concomitant]

REACTIONS (4)
  - ABDOMINAL DISTENSION [None]
  - ABDOMINAL PAIN [None]
  - CONDITION AGGRAVATED [None]
  - CONSTIPATION [None]
